FAERS Safety Report 7224550-8 (Version None)
Quarter: 2011Q1

REPORT INFORMATION
  Report Type: 
  Country: None (occurrence: None)
  Receive Date: 20110106
  Receipt Date: 20110106
  Transmission Date: 20110831
  Serious: Yes (Hospitalization)
  Sender: FDA-Public Use
  Company Number: None

PATIENT
  Age: 62 Year
  Sex: Female
  Weight: 50 kg

DRUGS (12)
  1. LODINE [Suspect]
     Indication: ARTHRALGIA
     Dosage: 600MG QDAY PO CHRONIC
     Route: 048
  2. COENZYME Q100 [Concomitant]
  3. NATURAL TEARS [Concomitant]
  4. AFRIN [Concomitant]
  5. CALCIUM + VIT D [Concomitant]
  6. REMICADE [Concomitant]
  7. FISH OIL [Concomitant]
  8. METHOTREXATE [Suspect]
     Indication: RHEUMATOID ARTHRITIS
     Dosage: 5MG QWEEKLY PO CHRONIC
     Route: 048
  9. TYLENOL SINUS [Concomitant]
  10. COREG [Concomitant]
  11. FOLIC ACID [Concomitant]
  12. VIT D3 [Concomitant]

REACTIONS (9)
  - GASTROINTESTINAL HAEMORRHAGE [None]
  - HAEMOGLOBIN DECREASED [None]
  - GASTRIC POLYPS [None]
  - SYNCOPE [None]
  - GASTRITIS [None]
  - DIVERTICULUM [None]
  - HIATUS HERNIA [None]
  - HAEMATOCRIT DECREASED [None]
  - RECTAL POLYP [None]
